FAERS Safety Report 7280172-4 (Version None)
Quarter: 2011Q1

REPORT INFORMATION
  Report Type: 
  Country: None (occurrence: None)
  Receive Date: 20110208
  Receipt Date: 20110117
  Transmission Date: 20110831
  Serious: Yes (Other)
  Sender: FDA-Public Use
  Company Number: PHHY2011JP04322

PATIENT
  Sex: Male
  Weight: 52 kg

DRUGS (40)
  1. KLARICID [Concomitant]
     Dosage: 400 MG, UNK
     Route: 048
  2. VALTREX [Concomitant]
     Dosage: 1000 MG, UNK
     Route: 048
  3. PROGRAF [Concomitant]
     Dosage: 1 MG, UNK
     Route: 048
  4. PROGRAF [Concomitant]
     Dosage: 1 MG, UNK
     Route: 048
  5. VALTREX [Concomitant]
     Dosage: 1000 MG, UNK
     Route: 048
  6. URSO 250 [Concomitant]
     Indication: PROPHYLAXIS
     Dosage: 300 MG, UNK
     Route: 048
     Dates: start: 20100609
  7. BAKTAR [Concomitant]
     Dosage: 1 DF, UNK
     Route: 048
     Dates: start: 20100609
  8. PROGRAF [Concomitant]
     Dosage: 0.9 MG, UNK
     Route: 048
  9. PROGRAF [Concomitant]
     Dosage: 1 MG, UNK
     Route: 048
  10. HUSTAZOL [Concomitant]
     Dosage: 30 MG, UNK
     Route: 048
     Dates: start: 20100611, end: 20100617
  11. MYCOBUTIN [Concomitant]
     Dosage: 300 MG, UNK
     Route: 048
     Dates: start: 20091013, end: 20100306
  12. URSO 250 [Concomitant]
     Dosage: 600 MG, UNK
     Route: 048
  13. PROGRAF [Concomitant]
     Dosage: 0.8 MG, UNK
     Route: 048
     Dates: start: 20100609
  14. PLATELETS [Concomitant]
     Dates: start: 20100817, end: 20101207
  15. ZANTAC [Concomitant]
     Dosage: 150 MG, UNK
     Route: 048
     Dates: start: 20091013, end: 20100306
  16. GASPORT D [Concomitant]
     Dosage: 10 MG, UNK
     Route: 048
  17. GRAN [Concomitant]
     Dosage: 75 UG, UNK
     Dates: end: 20101208
  18. RED CELLS MAP [Concomitant]
     Dosage: 2 U, 2-4 TIMES A MONTH
     Dates: start: 20100107, end: 20100305
  19. EXJADE [Suspect]
     Indication: MYELODYSPLASTIC SYNDROME
     Dosage: 500 MG, UNK
     Route: 048
     Dates: start: 20100107, end: 20100125
  20. EXJADE [Suspect]
     Dosage: 1000 MG, UNK
     Route: 048
     Dates: start: 20101202, end: 20101206
  21. PROGRAF [Concomitant]
     Dosage: 1 MG, UNK
     Route: 048
  22. GRAN [Concomitant]
     Dosage: 75 UG, UNK
     Dates: start: 20101130
  23. GRAN [Concomitant]
     Dosage: 75 UG, UNK
  24. EBUTOL [Concomitant]
     Dosage: 750 MG, UNK
     Route: 048
     Dates: start: 20091013, end: 20100306
  25. KLARICID [Concomitant]
     Dosage: 800 MG, UNK
     Route: 048
     Dates: start: 20091013
  26. VALTREX [Concomitant]
     Dosage: 1000 MG, UNK
     Route: 048
     Dates: start: 20091027
  27. BAKTAR [Concomitant]
     Dosage: 1 DF, UNK
     Route: 048
  28. BAKTAR [Concomitant]
     Dosage: 1 DF, UNK
     Route: 048
  29. SAXIZON [Concomitant]
     Dosage: 100 MG, UNK
     Dates: start: 20100817, end: 20101207
  30. PLATELETS [Concomitant]
     Dosage: 10 U, 2-8 TIMES A MONTH
     Dates: start: 20100108, end: 20100306
  31. EXJADE [Suspect]
     Dosage: 500 MG, UNK
     Route: 048
     Dates: start: 20100609, end: 20101201
  32. KLARICID [Concomitant]
     Dosage: 400 MG, UNK
     Route: 048
  33. GASPORT D [Concomitant]
     Dosage: 10 MG, UNK
     Route: 048
     Dates: start: 20100609
  34. PROGRAF [Concomitant]
     Dosage: 1 MG, UNK
     Route: 048
  35. PROGRAF [Concomitant]
     Dosage: 0.4 MG, UNK
     Route: 048
  36. EXJADE [Suspect]
     Dosage: 1000 MG, UNK
     Route: 048
     Dates: start: 20100126, end: 20100306
  37. DIFLUCAN [Concomitant]
     Dosage: 200 MG, UNK
     Route: 048
     Dates: start: 20091119, end: 20100306
  38. VFEND [Concomitant]
     Dosage: 200 MG, UNK
     Route: 048
     Dates: start: 20100609, end: 20100622
  39. PROGRAF [Concomitant]
     Dosage: 0.5 MG, UNK
     Route: 048
  40. RED CELLS MAP [Concomitant]
     Dates: start: 20100913, end: 20101125

REACTIONS (5)
  - GAMMA-GLUTAMYLTRANSFERASE INCREASED [None]
  - HEPATIC FUNCTION ABNORMAL [None]
  - BLOOD ALKALINE PHOSPHATASE INCREASED [None]
  - ALANINE AMINOTRANSFERASE INCREASED [None]
  - GRAFT VERSUS HOST DISEASE [None]
